FAERS Safety Report 5662601-2 (Version None)
Quarter: 2008Q1

REPORT INFORMATION
  Report Type: 
  Country: None (occurrence: None)
  Receive Date: 20080310
  Receipt Date: 20080310
  Transmission Date: 20080703
  Serious: Yes (Life-Threatening, Hospitalization)
  Sender: FDA-Public Use
  Company Number: None

PATIENT
  Sex: Male
  Weight: 104.7809 kg

DRUGS (2)
  1. SIMVASTATIN [Suspect]
     Indication: CORONARY ARTERY DISEASE
     Dosage: 80 MG  ONCE DAILY  PO
     Route: 048
     Dates: start: 20080201, end: 20080301
  2. SIMVASTATIN [Suspect]
     Indication: HYPERLIPIDAEMIA
     Dosage: 80 MG  ONCE DAILY  PO
     Route: 048
     Dates: start: 20080201, end: 20080301

REACTIONS (2)
  - INFLUENZA LIKE ILLNESS [None]
  - RHABDOMYOLYSIS [None]
